FAERS Safety Report 5486456-4 (Version None)
Quarter: 2007Q4

REPORT INFORMATION
  Report Type: 
  Country: None (occurrence: None)
  Receive Date: 20071016
  Receipt Date: 20071011
  Transmission Date: 20080405
  Serious: Yes (Other)
  Sender: FDA-Public Use
  Company Number: A0687610A

PATIENT
  Age: 39 Year
  Sex: Female

DRUGS (1)
  1. AVANDIA [Suspect]
     Indication: DRUG USE FOR UNKNOWN INDICATION
     Route: 048

REACTIONS (5)
  - ARTHRALGIA [None]
  - BACK PAIN [None]
  - DYSPNOEA [None]
  - MUSCLE ATROPHY [None]
  - MUSCULAR WEAKNESS [None]
